FAERS Safety Report 9292227 (Version 1)
Quarter: 2013Q2

REPORT INFORMATION
  Report Type: Spontaneous
  Country: US (occurrence: US)
  Receive Date: 20130516
  Receipt Date: 20130516
  Transmission Date: 20140414
  Serious: No
  Sender: FDA-Public Use
  Company Number: US-MYLANLABS-2012S1013700

PATIENT
  Age: 52 Year
  Sex: Female

DRUGS (3)
  1. BROMOCRIPTINE MESYLATE CAPSULES, USP [Suspect]
     Indication: PITUITARY TUMOUR
     Route: 048
     Dates: start: 20120605, end: 20120606
  2. POLY-IRON [Concomitant]
     Dosage: IRON SUPPLEMENT
     Route: 048
  3. METOPROLOL [Concomitant]
     Indication: BLOOD PRESSURE
     Route: 048

REACTIONS (3)
  - Nasal congestion [Recovered/Resolved]
  - Nausea [Recovered/Resolved]
  - Asthenia [Recovered/Resolved]
